FAERS Safety Report 7248411-3 (Version None)
Quarter: 2011Q1

REPORT INFORMATION
  Report Type: 
  Country: None (occurrence: None)
  Receive Date: 20110127
  Receipt Date: 20110121
  Transmission Date: 20110831
  Serious: Yes (Other)
  Sender: FDA-Public Use
  Company Number: US-AMGEN-USASP2011003884

PATIENT
  Age: 41 Year
  Sex: Female

DRUGS (9)
  1. ENBREL [Suspect]
     Indication: RHEUMATOID ARTHRITIS
     Dosage: 50 MG, UNK
     Dates: start: 20100101
  2. LEFLUNOMIDE [Concomitant]
  3. LORTAB [Concomitant]
  4. CYMBALTA [Concomitant]
  5. FOLIC ACID [Concomitant]
  6. LEVOTHYROXINE SODIUM [Concomitant]
  7. ALPRAZOLAM [Concomitant]
  8. METHOTREXATE [Concomitant]
  9. FAMOTIDINE [Concomitant]

REACTIONS (1)
  - BUTTERFLY RASH [None]
